FAERS Safety Report 4591297-6 (Version None)
Quarter: 2005Q1

REPORT INFORMATION
  Report Type: 
  Country: None (occurrence: None)
  Receive Date: 20050217
  Receipt Date: 20050203
  Transmission Date: 20050727
  Serious: Yes (Death)
  Sender: FDA-Public Use
  Company Number: A03200500333

PATIENT
  Age: 63 Year
  Sex: Female

DRUGS (1)
  1. KAYEXALATE [Suspect]
     Indication: HYPERKALAEMIA

REACTIONS (6)
  - ASPIRATION [None]
  - CARDIOMEGALY [None]
  - COMA [None]
  - INTERCAPILLARY GLOMERULOSCLEROSIS [None]
  - PULMONARY CONGESTION [None]
  - PULMONARY OEDEMA [None]
